FAERS Safety Report 25785970 (Version 3)
Quarter: 2025Q3

REPORT INFORMATION
  Report Type: Report from Study
  Country: US (occurrence: US)
  Receive Date: 20250910
  Receipt Date: 20250925
  Transmission Date: 20251020
  Serious: Yes (Other)
  Sender: MALLINCKRODT
  Company Number: US-MALLINCKRODT-MNK202505458

PATIENT
  Sex: Female

DRUGS (6)
  1. CORTICOTROPIN [Suspect]
     Active Substance: CORTICOTROPIN
     Indication: Multiple sclerosis
     Dosage: 80 UNITS
     Route: 058
  2. CANNABIDIOL [Concomitant]
     Active Substance: CANNABIDIOL
  3. BENADRYL [Concomitant]
     Active Substance: DIPHENHYDRAMINE HYDROCHLORIDE
  4. VITAMIN D NOS [Concomitant]
     Active Substance: CHOLECALCIFEROL\ERGOCALCIFEROL
  5. KESIMPTA [Concomitant]
     Active Substance: OFATUMUMAB
     Indication: Multiple sclerosis
     Dates: start: 2022
  6. KESIMPTA [Concomitant]
     Active Substance: OFATUMUMAB
     Dates: start: 202501

REACTIONS (9)
  - Multiple sclerosis relapse [Unknown]
  - Optic neuritis [Unknown]
  - Systemic lupus erythematosus [Unknown]
  - Blindness unilateral [Unknown]
  - Head discomfort [Unknown]
  - Mobility decreased [Unknown]
  - Sensory loss [Unknown]
  - Initial insomnia [Unknown]
  - Product dose omission issue [Unknown]
